FAERS Safety Report 6912591-7 (Version None)
Quarter: 2010Q3

REPORT INFORMATION
  Report Type: 
  Country: None (occurrence: None)
  Receive Date: 20100806
  Receipt Date: 20080805
  Transmission Date: 20110219
  Serious: No
  Sender: FDA-Public Use
  Company Number: US-PFIZER INC-2008061062

PATIENT
  Sex: Female
  Weight: 93.2 kg

DRUGS (8)
  1. DETROL LA [Suspect]
     Indication: INCONTINENCE
     Route: 048
     Dates: start: 20070101
  2. NORVASC [Concomitant]
  3. LIPITOR [Concomitant]
  4. COMBIPATCH [Concomitant]
  5. ASCORBIC ACID [Concomitant]
  6. CHONDROITIN/GLUCOSAMINE [Concomitant]
  7. ALL OTHER THERAPEUTIC PRODUCTS [Concomitant]
  8. ASPIRIN [Concomitant]

REACTIONS (3)
  - BLADDER DISORDER [None]
  - DRUG EFFECT DECREASED [None]
  - INSOMNIA [None]
